FAERS Safety Report 20262489 (Version 2)
Quarter: 2022Q1

REPORT INFORMATION
  Report Type: Spontaneous
  Country: JP (occurrence: JP)
  Receive Date: 20211231
  Receipt Date: 20220131
  Transmission Date: 20220423
  Serious: Yes (Hospitalization)
  Sender: FDA-Public Use
  Company Number: JP-TEVA-2020-JP-1809849

PATIENT
  Age: 73 Year
  Sex: Female

DRUGS (12)
  1. ETOPOSIDE [Suspect]
     Active Substance: ETOPOSIDE
     Indication: Still^s disease
     Dosage: 150 MG/M 2 WHICH EQUALS TO 190MG, PER HLH-2004 PROTOCOL.
     Route: 065
  2. ETOPOSIDE [Suspect]
     Active Substance: ETOPOSIDE
     Indication: Haemophagocytic lymphohistiocytosis
  3. TOCILIZUMAB [Suspect]
     Active Substance: TOCILIZUMAB
     Indication: Still^s disease
     Dosage: EQUALS TO 320MG
     Route: 041
  4. TOCILIZUMAB [Suspect]
     Active Substance: TOCILIZUMAB
     Indication: Haemophagocytic lymphohistiocytosis
     Dosage: AFTER THE SECOND INFUSION FREQUENCY INCREASED TO MONTHLY
     Route: 041
  5. METHYLPREDNISOLONE [Concomitant]
     Active Substance: METHYLPREDNISOLONE
     Indication: Still^s disease
     Dosage: 500 MILLIGRAM DAILY; PULSE THERAPY ON DAY 25 AFTER DIAGNOSIS
     Route: 065
  6. METHYLPREDNISOLONE [Concomitant]
     Active Substance: METHYLPREDNISOLONE
     Indication: Haemophagocytic lymphohistiocytosis
     Dosage: 500 MILLIGRAM DAILY; PULSE THERAPY ON DAY 46 AFTER DIAGNOSIS
     Route: 065
  7. DEXAMETHASONE [Concomitant]
     Active Substance: DEXAMETHASONE
     Indication: Still^s disease
     Dosage: 13.2 MILLIGRAM DAILY; TAPERED OFF WITHIN 7 YEARS, WITHOUT FLARE AFTER THE INITIATION OF TOCILIZUMAB
     Route: 042
  8. DEXAMETHASONE [Concomitant]
     Active Substance: DEXAMETHASONE
     Indication: Haemophagocytic lymphohistiocytosis
  9. CYCLOSPORINE [Concomitant]
     Active Substance: CYCLOSPORINE
     Indication: Still^s disease
     Dosage: 200 MILLIGRAM DAILY; CONTINUED THROUGHOUT THE TREATMENT AT DIFFERENT DOSES (200MG/DAY REPORTED DURIN
     Route: 065
  10. CYCLOSPORINE [Concomitant]
     Active Substance: CYCLOSPORINE
     Indication: Haemophagocytic lymphohistiocytosis
  11. PREDNISOLONE [Concomitant]
     Active Substance: PREDNISOLONE
     Indication: Still^s disease
     Dosage: TAPERED OFF 15 MONTHS, WITHOUT FLARE AFTER THE INITIATION OF TOCILIZUMAB
     Route: 065
  12. PREDNISOLONE [Concomitant]
     Active Substance: PREDNISOLONE
     Indication: Haemophagocytic lymphohistiocytosis

REACTIONS (2)
  - Myelosuppression [Unknown]
  - Off label use [Unknown]
